FAERS Safety Report 4785853-X (Version None)
Quarter: 2005Q3

REPORT INFORMATION
  Report Type: 
  Country: None (occurrence: None)
  Receive Date: 20050930
  Receipt Date: 20050922
  Transmission Date: 20060218
  Serious: Yes (Other)
  Sender: FDA-Public Use
  Company Number: DKLU1017221

PATIENT
  Age: 22 Year
  Sex: Male

DRUGS (4)
  1. RISPERIDONE          (INJECTION) [Suspect]
     Indication: SCHIZOPHRENIA
     Dosage: (50 MG MILLIGRAM (S), EVERY 2ND WEEK) INTRAMUSCULAR
     Route: 030
     Dates: start: 20050705
  2. XANAX [Concomitant]
  3. DEPAKOTE (VALPROATE SEMISODIUM) (TABLET) [Concomitant]
  4. ZOLOFT [Concomitant]

REACTIONS (3)
  - ABDOMINAL INJURY [None]
  - ANXIETY [None]
  - SELF MUTILATION [None]
